FAERS Safety Report 5992348-4 (Version None)
Quarter: 2008Q4

REPORT INFORMATION
  Report Type: 
  Country: None (occurrence: None)
  Receive Date: 20081202
  Receipt Date: 20080104
  Transmission Date: 20090506
  Serious: Yes (Other)
  Sender: FDA-Public Use
  Company Number: WAES 0705USA02838

PATIENT
  Age: 56 Year
  Sex: Female
  Weight: 49.8957 kg

DRUGS (1)
  1. FOSAMAX [Suspect]
     Indication: OSTEOPOROSIS
     Dosage: 91.37 MG/WKY/PO
     Route: 048
     Dates: start: 20050221, end: 20080419

REACTIONS (25)
  - BACK PAIN [None]
  - BRUXISM [None]
  - CHEST PAIN [None]
  - DENTAL CARIES [None]
  - EAR DISORDER [None]
  - EUSTACHIAN TUBE DYSFUNCTION [None]
  - GINGIVITIS [None]
  - INTRACRANIAL HYPOTENSION [None]
  - LUNG DISORDER [None]
  - MIDDLE EAR EFFUSION [None]
  - NASAL CONGESTION [None]
  - OBSTRUCTION [None]
  - ORAL INFECTION [None]
  - ORAL PAIN [None]
  - OSTEONECROSIS [None]
  - OSTEOPENIA [None]
  - OVERDOSE [None]
  - PAIN [None]
  - PEDAL PULSE DECREASED [None]
  - PERIODONTAL DISEASE [None]
  - POSTMENOPAUSE [None]
  - RESORPTION BONE INCREASED [None]
  - RHINITIS [None]
  - TOOTH LOSS [None]
  - TRISMUS [None]
